FAERS Safety Report 8523183-0 (Version None)
Quarter: 2012Q3

REPORT INFORMATION
  Report Type: 
  Country: None (occurrence: None)
  Receive Date: 20120713
  Receipt Date: 20120713
  Transmission Date: 20120928
  Serious: Yes (Other)
  Sender: FDA-Public Use
  Company Number: None

PATIENT
  Sex: Female

DRUGS (6)
  1. LASIX [Concomitant]
  2. POTASIUM [Concomitant]
  3. LOPERAMIDE [Concomitant]
  4. HYDRALAZINE HCL [Suspect]
     Indication: PNEUMONIA
     Dosage: 25 MG THREE A DAY PO
     Route: 048
     Dates: start: 20120625, end: 20120711
  5. PREMARIN [Concomitant]
  6. MINITRAN [Concomitant]

REACTIONS (2)
  - OEDEMA PERIPHERAL [None]
  - JOINT SWELLING [None]
